FAERS Safety Report 4350357-5 (Version None)
Quarter: 2004Q2

REPORT INFORMATION
  Report Type: 
  Country: None (occurrence: None)
  Receive Date: 20040409
  Receipt Date: 20040312
  Transmission Date: 20050107
  Serious: No
  Sender: FDA-Public Use
  Company Number: PHEH2004US02979

PATIENT
  Age: 24 Year
  Sex: Female

DRUGS (2)
  1. ELIDEL [Suspect]
     Indication: ECZEMA
     Dosage: BID, TOPICAL
     Route: 061
     Dates: start: 20031201
  2. ETHANOL (ETHANOL) [Suspect]

REACTIONS (3)
  - ALCOHOL INTERACTION [None]
  - APPLICATION SITE BURNING [None]
  - APPLICATION SITE ERYTHEMA [None]
